FAERS Safety Report 10243996 (Version 1)
Quarter: 2014Q2

REPORT INFORMATION
  Report Type: Spontaneous
  Country: US (occurrence: None)
  Receive Date: 20140616
  Receipt Date: 20140616
  Transmission Date: 20141212
  Serious: Yes (Other)
  Sender: FDA-Public Use
  Company Number: 2014PAC00001

PATIENT
  Age: 70 Year
  Sex: Female
  Weight: 65.8 kg

DRUGS (3)
  1. CETIRIZINE HYDROCHLORIDE TABLETS 10MG - ALLERGY(CETIRIZINE) TABLET [Suspect]
     Indication: SEASONAL ALLERGY
     Route: 048
     Dates: start: 20140530, end: 20140531
  2. SERTRALINE [Concomitant]
  3. LOSARTAN [Concomitant]

REACTIONS (8)
  - Swollen tongue [None]
  - Erythema [None]
  - Pruritus [None]
  - Nausea [None]
  - Accidental overdose [None]
  - Urticaria [None]
  - Malaise [None]
  - Eye pruritus [None]
